FAERS Safety Report 24720678 (Version 1)
Quarter: 2024Q4

REPORT INFORMATION
  Report Type: Report from Study
  Country: GB (occurrence: GB)
  Receive Date: 20241211
  Receipt Date: 20241211
  Transmission Date: 20250114
  Serious: Yes (Hospitalization)
  Sender: EMD SERONO INC
  Company Number: GB-Merck Healthcare KGaA-2024063961

PATIENT
  Sex: Female

DRUGS (6)
  1. MAVENCLAD [Suspect]
     Active Substance: CLADRIBINE
     Indication: Multiple sclerosis
     Dosage: YEAR ONE WEEK ONE: TWO TABLETS ON DAYS 1 TO 3 AND ONE TABLET ON DAYS 4 AND 5
     Dates: start: 20190708
  2. MAVENCLAD [Suspect]
     Active Substance: CLADRIBINE
     Dosage: YEAR ONE WEEK FIVE: TWO TABLETS ON DAYS 1 TO 3 AND ONE TABLET ON DAYS 4 AND 5
     Dates: start: 20190805
  3. MAVENCLAD [Suspect]
     Active Substance: CLADRIBINE
     Dosage: YEAR TWO WEEK ONE: TWO TABLETS ON DAYS 1 AND 2 AND ONE TABLET ON DAYS 3 TO 5
     Dates: start: 20201217
  4. MAVENCLAD [Suspect]
     Active Substance: CLADRIBINE
     Dosage: YEAR TWO WEEK FIVE: TWO TABLETS ON DAYS 1 TO 3 AND ONE TABLET ON DAYS 4 AND 5
     Dates: start: 20210114
  5. MAVENCLAD [Suspect]
     Active Substance: CLADRIBINE
     Dosage: YEAR SIX WEEK ONE THERAPY
  6. MAVENCLAD [Suspect]
     Active Substance: CLADRIBINE
     Dosage: YEAR SIX WEEK FIVE: TWO TABLETS ON DAYS 1 TO 3 AND ONE TABLET ON DAYS 4 AND 5
     Dates: start: 20241104

REACTIONS (5)
  - C-reactive protein increased [Recovered/Resolved]
  - Malaise [Unknown]
  - Multiple sclerosis relapse [Unknown]
  - Balance disorder [Unknown]
  - Lymphocyte count decreased [Unknown]
